FAERS Safety Report 9537498 (Version 1)
Quarter: 2013Q3

REPORT INFORMATION
  Report Type: Report from Study
  Country: US (occurrence: US)
  Receive Date: 20130919
  Receipt Date: 20130919
  Transmission Date: 20140515
  Serious: Yes (Other)
  Sender: FDA-Public Use
  Company Number: PHEH2013US018685

PATIENT
  Age: 7 Year
  Sex: Female

DRUGS (1)
  1. AFINITOR [Suspect]
     Indication: TUBEROUS SCLEROSIS
     Route: 048
     Dates: start: 20120818

REACTIONS (4)
  - Renal cyst [Unknown]
  - Attention deficit/hyperactivity disorder [Unknown]
  - Learning disability [Unknown]
  - Fine motor delay [Unknown]
